FAERS Safety Report 4626683-9 (Version None)
Quarter: 2005Q2

REPORT INFORMATION
  Report Type: 
  Country: None (occurrence: None)
  Receive Date: 20050405
  Receipt Date: 20050324
  Transmission Date: 20051028
  Serious: Yes (Other)
  Sender: FDA-Public Use
  Company Number: US-JNJFOC-20050306290

PATIENT
  Sex: Male
  Weight: 55.79 kg

DRUGS (5)
  1. INFLIXIMAB [Suspect]
     Indication: RHEUMATOID ARTHRITIS
     Route: 042
  2. METHOTREXATE [Concomitant]
  3. CALCIUM GLUCONATE [Concomitant]
  4. NAPROXEN [Concomitant]
  5. PREDNISONE TAB [Concomitant]

REACTIONS (1)
  - PANCREATIC CARCINOMA [None]
